FAERS Safety Report 25668693 (Version 1)
Quarter: 2025Q3

REPORT INFORMATION
  Report Type: Report from Study
  Country: US (occurrence: US)
  Receive Date: 20250812
  Receipt Date: 20250812
  Transmission Date: 20251021
  Serious: Yes (Other)
  Sender: TAKEDA
  Company Number: US-TAKEDA-2025TUS070637

PATIENT
  Sex: Male

DRUGS (1)
  1. VEDOLIZUMAB [Suspect]
     Active Substance: VEDOLIZUMAB
     Indication: Proctitis ulcerative

REACTIONS (11)
  - Congenital cystic kidney disease [Unknown]
  - Renal cell carcinoma [Unknown]
  - Large intestine polyp [Unknown]
  - Diverticulum intestinal [Unknown]
  - Blood urea increased [Unknown]
  - Blood creatinine increased [Unknown]
  - Immature granulocyte count increased [Unknown]
  - Mean platelet volume decreased [Unknown]
  - Glomerular filtration rate decreased [Unknown]
  - Haemorrhoids [Unknown]
  - Constipation [Unknown]
